FAERS Safety Report 12009666 (Version 6)
Quarter: 2016Q3

REPORT INFORMATION
  Report Type: Spontaneous
  Country: US (occurrence: US)
  Receive Date: 20160205
  Receipt Date: 20160713
  Transmission Date: 20161109
  Serious: No
  Sender: FDA-Public Use
  Company Number: US-PFIZER INC-2016061089

PATIENT
  Age: 65 Year
  Sex: Female
  Weight: 55.33 kg

DRUGS (6)
  1. LETROZOLE. [Concomitant]
     Active Substance: LETROZOLE
     Dosage: UNK
  2. IBRANCE [Suspect]
     Active Substance: PALBOCICLIB
     Dosage: UNK
     Route: 048
  3. IBRANCE [Suspect]
     Active Substance: PALBOCICLIB
     Dosage: UNK
     Dates: start: 20160303
  4. ATIVAN [Concomitant]
     Active Substance: LORAZEPAM
     Dosage: UNK, AS NEEDED
  5. IBRANCE [Suspect]
     Active Substance: PALBOCICLIB
     Indication: BREAST CANCER METASTATIC
     Dosage: 125 MG, CYCLIC (DAY 1-21 Q 28 DAYS)
     Route: 048
     Dates: start: 20150521
  6. IBRANCE [Suspect]
     Active Substance: PALBOCICLIB
     Dosage: UNK

REACTIONS (14)
  - Emotional disorder [Recovering/Resolving]
  - Asthenia [Unknown]
  - Anxiety [Unknown]
  - Malaise [Unknown]
  - Weight increased [Unknown]
  - Dizziness [Unknown]
  - Alopecia [Unknown]
  - Depression [Recovered/Resolved]
  - Crying [Recovering/Resolving]
  - Vomiting [Unknown]
  - Fatigue [Unknown]
  - Nausea [Unknown]
  - Headache [Unknown]
  - Hot flush [Unknown]
